FAERS Safety Report 21944194 (Version 1)
Quarter: 2023Q1

REPORT INFORMATION
  Report Type: Spontaneous
  Country: US (occurrence: None)
  Receive Date: 20230201
  Receipt Date: 20230201
  Transmission Date: 20230418
  Serious: Yes (Hospitalization)
  Sender: FDA-Public Use
  Company Number: None

PATIENT
  Sex: Male

DRUGS (1)
  1. NEULASTA [Suspect]
     Active Substance: PEGFILGRASTIM
     Indication: Mantle cell lymphoma
     Dosage: FREQUENCY : MONTHLY;?
     Route: 058
     Dates: start: 20221216

REACTIONS (1)
  - Pancreatitis acute [None]
